FAERS Safety Report 17961071 (Version 1)
Quarter: 2020Q2

REPORT INFORMATION
  Report Type: Spontaneous
  Country: US (occurrence: US)
  Receive Date: 20200629
  Receipt Date: 20200629
  Transmission Date: 20200714
  Serious: No
  Sender: FDA-Public Use
  Company Number: US-ROCHE-2341647

PATIENT
  Sex: Female

DRUGS (1)
  1. XELODA [Suspect]
     Active Substance: CAPECITABINE
     Indication: PRODUCT USED FOR UNKNOWN INDICATION
     Route: 048
     Dates: start: 20190409

REACTIONS (4)
  - Abdominal pain upper [Recovering/Resolving]
  - Vomiting [Unknown]
  - Neuropathy peripheral [Recovered/Resolved]
  - Weight increased [Unknown]
